FAERS Safety Report 9367556 (Version 1)
Quarter: 2013Q2

REPORT INFORMATION
  Report Type: Spontaneous
  Country: US (occurrence: US)
  Receive Date: 20130625
  Receipt Date: 20130625
  Transmission Date: 20140414
  Serious: Yes (Other)
  Sender: FDA-Public Use
  Company Number: US-ASTELLAS-2012US007650

PATIENT
  Sex: Female

DRUGS (2)
  1. VESICARE [Suspect]
     Indication: URINARY INCONTINENCE
     Dosage: UNK
     Route: 048
     Dates: start: 2007, end: 20120222
  2. VESICARE [Suspect]
     Dosage: UNK
     Route: 048
     Dates: start: 20120907

REACTIONS (1)
  - Angioedema [Not Recovered/Not Resolved]
